FAERS Safety Report 5474786-1 (Version None)
Quarter: 2007Q4

REPORT INFORMATION
  Report Type: 
  Country: None (occurrence: None)
  Receive Date: 20071002
  Receipt Date: 20071001
  Transmission Date: 20080405
  Serious: Yes (Other)
  Sender: FDA-Public Use
  Company Number: B0486437A

PATIENT
  Age: 17 Year
  Sex: Male
  Weight: 60 kg

DRUGS (3)
  1. AUGMENTIN '125' [Suspect]
     Dosage: 1G SINGLE DOSE
     Route: 048
     Dates: start: 20070909, end: 20070909
  2. DI-ANTALVIC [Suspect]
     Dosage: 2TAB SINGLE DOSE
     Route: 048
     Dates: start: 20070909
  3. SOLU-MEDROL [Concomitant]
     Dosage: 40MG SINGLE DOSE
     Route: 048
     Dates: start: 20070909, end: 20070909

REACTIONS (6)
  - ANGIOEDEMA [None]
  - EPISTAXIS [None]
  - FEELING HOT [None]
  - SNEEZING [None]
  - URTICARIA [None]
  - VOMITING [None]
